FAERS Safety Report 7886669-8 (Version None)
Quarter: 2011Q4

REPORT INFORMATION
  Report Type: 
  Country: None (occurrence: None)
  Receive Date: 20111102
  Receipt Date: 20110708
  Transmission Date: 20120403
  Serious: Yes (Other)
  Sender: FDA-Public Use
  Company Number: US-AMGEN-USASP2011034803

PATIENT
  Age: 56 Year
  Sex: Female

DRUGS (2)
  1. HUMIRA [Concomitant]
  2. ENBREL [Suspect]
     Indication: RHEUMATOID ARTHRITIS
     Dosage: 50 MG, Q2MO
     Dates: start: 20060603, end: 20100701

REACTIONS (4)
  - DRUG INEFFECTIVE [None]
  - JOINT FLUID DRAINAGE [None]
  - JOINT SWELLING [None]
  - WHITE BLOOD CELL COUNT DECREASED [None]
